FAERS Safety Report 9878945 (Version 14)
Quarter: 2016Q1

REPORT INFORMATION
  Report Type: Report from Study
  Country: US (occurrence: US)
  Receive Date: 20140206
  Receipt Date: 20160330
  Transmission Date: 20160526
  Serious: Yes (Hospitalization, Other)
  Sender: FDA-Public Use
  Company Number: US-SA-2013SA132372

PATIENT
  Age: 41 Year
  Sex: Male

DRUGS (4)
  1. IVERMECTIN. [Concomitant]
     Active Substance: IVERMECTIN
  2. AUBAGIO [Suspect]
     Active Substance: TERIFLUNOMIDE
     Indication: MULTIPLE SCLEROSIS
     Dosage: 14 MG
     Route: 048
  3. AUBAGIO [Suspect]
     Active Substance: TERIFLUNOMIDE
     Indication: MULTIPLE SCLEROSIS
     Dosage: 7 MG
     Route: 048
     Dates: start: 20131212
  4. BOTOX [Concomitant]
     Active Substance: ONABOTULINUMTOXINA

REACTIONS (37)
  - Cardiac failure congestive [Unknown]
  - Diarrhoea haemorrhagic [Unknown]
  - Vision blurred [Unknown]
  - Renal pain [Unknown]
  - Fatigue [Unknown]
  - Muscular weakness [Unknown]
  - Pleural effusion [Unknown]
  - Hypersensitivity [Unknown]
  - Wheelchair user [Unknown]
  - Tremor [Unknown]
  - Skin discolouration [Unknown]
  - Dysgraphia [Not Recovered/Not Resolved]
  - Fall [Unknown]
  - Asthenia [Not Recovered/Not Resolved]
  - Somnolence [Unknown]
  - Injury associated with device [Unknown]
  - Blood pressure increased [Unknown]
  - Pain in extremity [Unknown]
  - Alopecia [Unknown]
  - Speech disorder [Unknown]
  - Dysarthria [Unknown]
  - Paraesthesia [Unknown]
  - Insomnia [Unknown]
  - Abasia [Unknown]
  - Musculoskeletal stiffness [Unknown]
  - Pain [Unknown]
  - Hemiparesis [Unknown]
  - Paralysis [Not Recovered/Not Resolved]
  - Facial asymmetry [Unknown]
  - Peripheral swelling [Unknown]
  - Sensory loss [Unknown]
  - Influenza [Unknown]
  - Multiple sclerosis relapse [Not Recovered/Not Resolved]
  - Band sensation [Recovering/Resolving]
  - Exostosis [Unknown]
  - Hypoaesthesia [Unknown]
  - Dysphagia [Not Recovered/Not Resolved]

NARRATIVE: CASE EVENT DATE: 201402
